FAERS Safety Report 7776014-0 (Version None)
Quarter: 2011Q3

REPORT INFORMATION
  Report Type: 
  Country: None (occurrence: None)
  Receive Date: 20110923
  Receipt Date: 20110914
  Transmission Date: 20111222
  Serious: Yes (Other)
  Sender: FDA-Public Use
  Company Number: CA-GENENTECH-324761

PATIENT
  Sex: Female

DRUGS (5)
  1. SYMBICORT [Concomitant]
     Indication: PRODUCT USED FOR UNKNOWN INDICATION
  2. XOLAIR [Suspect]
     Indication: ASTHMA
     Dosage: 300 MG, Q2W
     Route: 058
     Dates: start: 20090205
  3. PREDNISONE [Concomitant]
     Indication: PRODUCT USED FOR UNKNOWN INDICATION
  4. PULMICORT [Concomitant]
     Indication: PRODUCT USED FOR UNKNOWN INDICATION
  5. XOLAIR [Suspect]
     Dosage: UNK
     Dates: start: 20090630

REACTIONS (11)
  - BRONCHITIS [None]
  - SINUSITIS [None]
  - UPPER RESPIRATORY TRACT INFECTION [None]
  - SCIATIC NERVE INJURY [None]
  - NASOPHARYNGITIS [None]
  - ECCHYMOSIS [None]
  - FALL [None]
  - PRODUCTIVE COUGH [None]
  - INFLUENZA [None]
  - PNEUMONIA [None]
  - HYPOTENSION [None]
